FAERS Safety Report 8029654-8 (Version None)
Quarter: 2012Q1

REPORT INFORMATION
  Report Type: 
  Country: None (occurrence: None)
  Receive Date: 20120109
  Receipt Date: 20120105
  Transmission Date: 20120608
  Serious: Yes (Death)
  Sender: FDA-Public Use
  Company Number: US-PFIZER INC-2012004601

PATIENT
  Sex: Female

DRUGS (2)
  1. LIPITOR [Suspect]
     Indication: CHEST DISCOMFORT
  2. LIPITOR [Suspect]
     Indication: CARDIAC DISORDER
     Dosage: UNK,DAILY

REACTIONS (1)
  - DYSPNOEA [None]
